FAERS Safety Report 5911199-X (Version None)
Quarter: 2008Q4

REPORT INFORMATION
  Report Type: 
  Country: None (occurrence: None)
  Receive Date: 20081007
  Receipt Date: 20080708
  Transmission Date: 20090506
  Serious: No
  Sender: FDA-Public Use
  Company Number: US-BRISTOL-MYERS SQUIBB COMPANY-14257539

PATIENT
  Sex: Male

DRUGS (2)
  1. AVAPRO [Suspect]
  2. LIPITOR [Suspect]

REACTIONS (1)
  - HYPERKALAEMIA [None]
